FAERS Safety Report 7166630-1 (Version None)
Quarter: 2010Q4

REPORT INFORMATION
  Report Type: 
  Country: None (occurrence: None)
  Receive Date: 20101216
  Receipt Date: 20101214
  Transmission Date: 20110411
  Serious: Yes (Other)
  Sender: FDA-Public Use
  Company Number: JP-PFIZER INC-2010170986

PATIENT
  Age: 65 Year
  Sex: Female

DRUGS (1)
  1. SUTENT [Suspect]
     Dosage: UNK
     Route: 048

REACTIONS (1)
  - RENAL TUBULAR DISORDER [None]
